FAERS Safety Report 4598130-7 (Version None)
Quarter: 2005Q1

REPORT INFORMATION
  Report Type: 
  Country: None (occurrence: None)
  Receive Date: 20050204
  Receipt Date: 20040224
  Transmission Date: 20050727
  Serious: Yes (Hospitalization)
  Sender: FDA-Public Use
  Company Number: PHEH2004US02312

PATIENT
  Age: 46 Year
  Sex: Male

DRUGS (4)
  1. CLOZARIL [Suspect]
     Indication: SCHIZOPHRENIA
     Dosage: 400 MG/DAY, ORAL
     Route: 048
  2. VASOTEC [Concomitant]
  3. ASPIRIN [Concomitant]
  4. GLUCOTROL [Concomitant]

REACTIONS (6)
  - CARDIAC ARREST [None]
  - CONVULSION [None]
  - HYPOXIA [None]
  - INTUBATION [None]
  - LETHARGY [None]
  - MENTAL STATUS CHANGES [None]
